FAERS Safety Report 9431768 (Version 5)
Quarter: 2015Q1

REPORT INFORMATION
  Report Type: Report from Study
  Country: US (occurrence: US)
  Receive Date: 20130731
  Receipt Date: 20150123
  Transmission Date: 20150721
  Serious: Yes (Hospitalization, Other)
  Sender: FDA-Public Use
  Company Number: US-ALEXION-A201301719

PATIENT

DRUGS (3)
  1. SOLIRIS [Suspect]
     Active Substance: ECULIZUMAB
     Dosage: 900 MG, Q2W
     Route: 042
  2. SOLIRIS [Suspect]
     Active Substance: ECULIZUMAB
     Indication: PAROXYSMAL NOCTURNAL HAEMOGLOBINURIA
     Dosage: 600 MG,Q2W
     Route: 042
     Dates: start: 200709
  3. VIDAZA [Concomitant]
     Active Substance: AZACITIDINE
     Indication: TRANSFUSION
     Dosage: UNK
     Route: 042
     Dates: start: 201305

REACTIONS (4)
  - Thrombosis [Recovering/Resolving]
  - Myelodysplastic syndrome [Not Recovered/Not Resolved]
  - Embolism [Recovered/Resolved]
  - Blood product transfusion dependent [Unknown]

NARRATIVE: CASE EVENT DATE: 201308
